FAERS Safety Report 9900740 (Version 1)
Quarter: 2014Q1

REPORT INFORMATION
  Report Type: Spontaneous
  Country: IT (occurrence: IT)
  Receive Date: 20140217
  Receipt Date: 20140217
  Transmission Date: 20141002
  Serious: Yes (Hospitalization)
  Sender: FDA-Public Use
  Company Number: IT-ACCORD-021851

PATIENT
  Age: 85 Year
  Sex: Female

DRUGS (4)
  1. QUETIAPINE [Suspect]
     Indication: PSYCHOTIC DISORDER
     Route: 048
     Dates: start: 20140121
  2. AKINETON [Suspect]
     Indication: PSYCHOTIC DISORDER
     Dosage: AKINETON ^4 MG PROLONGED RELEASE TABLETS^ 50 TABLETS - (LABORATORIO FARMACEUTICO SIT SPECIALITA^ IGI
     Dates: start: 20140121
  3. TALOFEN [Suspect]
     Indication: PSYCHOTIC DISORDER
     Dosage: 20 DROPS?(ATC: N05AA03)
     Route: 048
     Dates: start: 20140121
  4. DIAZEPAM [Suspect]
     Indication: PSYCHOTIC DISORDER
     Dosage: 20 DROPS AS NEEDED
     Route: 048
     Dates: start: 20140121

REACTIONS (1)
  - Sopor [Recovered/Resolved]
